FAERS Safety Report 6187631-6 (Version None)
Quarter: 2009Q2

REPORT INFORMATION
  Report Type: 
  Country: None (occurrence: None)
  Receive Date: 20090511
  Receipt Date: 20090428
  Transmission Date: 20091009
  Serious: Yes (Death)
  Sender: FDA-Public Use
  Company Number: 2009AL002332

PATIENT
  Sex: Female

DRUGS (14)
  1. DIGOXIN [Suspect]
     Dosage: PO
     Route: 048
     Dates: end: 20080422
  2. MUPIROCIN [Concomitant]
  3. LEVOXYL [Concomitant]
  4. OMEPRAZOLE [Concomitant]
  5. ALBUTEROL [Concomitant]
  6. PREDNISONE [Concomitant]
  7. HYDROCODONE BITARTRATE [Concomitant]
  8. CARTIA XT [Concomitant]
  9. LYRICA [Concomitant]
  10. EVISTA [Concomitant]
  11. SINGULAIR [Concomitant]
  12. LORATADINE [Concomitant]
  13. ALPRAZOLAM [Concomitant]
  14. PANTOPRAZOLE SODIUM [Concomitant]

REACTIONS (18)
  - ASTHENIA [None]
  - BLOOD CREATININE INCREASED [None]
  - BLOOD GLUCOSE INCREASED [None]
  - BLOOD POTASSIUM INCREASED [None]
  - BLOOD PRESSURE DECREASED [None]
  - BLOOD UREA INCREASED [None]
  - DECREASED APPETITE [None]
  - FATIGUE [None]
  - ILL-DEFINED DISORDER [None]
  - INJURY [None]
  - MALAISE [None]
  - MENTAL DISORDER [None]
  - NAUSEA [None]
  - OVERDOSE [None]
  - PAIN [None]
  - THERAPEUTIC AGENT TOXICITY [None]
  - URINE OUTPUT DECREASED [None]
  - VOMITING [None]
